FAERS Safety Report 7389281-2 (Version None)
Quarter: 2011Q2

REPORT INFORMATION
  Report Type: 
  Country: None (occurrence: None)
  Receive Date: 20110401
  Receipt Date: 20110323
  Transmission Date: 20111010
  Serious: Yes (Other)
  Sender: FDA-Public Use
  Company Number: JP-JNJFOC-20110310949

PATIENT
  Sex: Female

DRUGS (8)
  1. DOXIL [Suspect]
     Dosage: CYCLE 6
     Route: 042
  2. DOXIL [Suspect]
     Dosage: CYCLE 7
     Route: 042
  3. DOXIL [Suspect]
     Dosage: CYCLE 3
     Route: 042
  4. DOXIL [Suspect]
     Dosage: CYCLE 1
     Route: 042
  5. DOXIL [Suspect]
     Indication: OVARIAN CANCER RECURRENT
     Dosage: CYCLE 5
     Route: 042
  6. DOXIL [Suspect]
     Dosage: CYCLE 2
     Route: 042
  7. DOXIL [Suspect]
     Dosage: CYCLE 4
     Route: 042
  8. DOXIL [Suspect]
     Dosage: CYCLE 8
     Route: 042

REACTIONS (1)
  - KERATITIS [None]
